FAERS Safety Report 18888875 (Version 1)
Quarter: 2021Q1

REPORT INFORMATION
  Report Type: Report from Study
  Country: US (occurrence: US)
  Receive Date: 20210212
  Receipt Date: 20210212
  Transmission Date: 20210420
  Serious: Yes (Death)
  Sender: FDA-Public Use
  Company Number: US-ASTRAZENECA-2021A045700

PATIENT
  Age: 26408 Day
  Sex: Female

DRUGS (27)
  1. GLYBURIDE. [Concomitant]
     Active Substance: GLYBURIDE
  2. ARIPIPRAZOLE. [Concomitant]
     Active Substance: ARIPIPRAZOLE
  3. TRAZODONE [Concomitant]
     Active Substance: TRAZODONE HYDROCHLORIDE
  4. PROCHLORPERAZINE. [Concomitant]
     Active Substance: PROCHLORPERAZINE
  5. FLUOXETINE [Concomitant]
     Active Substance: FLUOXETINE HYDROCHLORIDE
  6. CLOTRIMAZOLE. [Concomitant]
     Active Substance: CLOTRIMAZOLE
  7. SUCRALFATE. [Concomitant]
     Active Substance: SUCRALFATE
  8. ACETAMINOPHEN. [Concomitant]
     Active Substance: ACETAMINOPHEN
  9. ZOFRAN [Concomitant]
     Active Substance: ONDANSETRON HYDROCHLORIDE
  10. NARCAN [Concomitant]
     Active Substance: NALOXONE HYDROCHLORIDE
  11. KLOR?CON [Concomitant]
     Active Substance: POTASSIUM CHLORIDE
  12. MIRALAX [Concomitant]
     Active Substance: POLYETHYLENE GLYCOL 3350
  13. MEGASTROL [Concomitant]
  14. GABAPENTIN. [Concomitant]
     Active Substance: GABAPENTIN
  15. ALPRAZOLAM. [Concomitant]
     Active Substance: ALPRAZOLAM
  16. PRILOSEC [Suspect]
     Active Substance: OMEPRAZOLE MAGNESIUM
     Route: 048
  17. SENOKOT [Concomitant]
     Active Substance: SENNOSIDES
  18. MS CONTIN [Concomitant]
     Active Substance: MORPHINE SULFATE
  19. MIRTAZAPINE. [Concomitant]
     Active Substance: MIRTAZAPINE
  20. COLACE [Concomitant]
     Active Substance: DOCUSATE SODIUM
  21. CRESTOR [Suspect]
     Active Substance: ROSUVASTATIN CALCIUM
     Route: 048
  22. OLMESARTAN [Concomitant]
     Active Substance: OLMESARTAN
  23. LIDOCAINE. [Concomitant]
     Active Substance: LIDOCAINE
  24. IBUPROFEN. [Concomitant]
     Active Substance: IBUPROFEN
  25. TAGRISSO [Suspect]
     Active Substance: OSIMERTINIB
     Indication: LUNG CARCINOMA CELL TYPE UNSPECIFIED STAGE 0
     Route: 048
  26. OXYCODONE [Concomitant]
     Active Substance: OXYCODONE
  27. DIPHENHYDRAMINE. [Concomitant]
     Active Substance: DIPHENHYDRAMINE

REACTIONS (1)
  - Death [Fatal]

NARRATIVE: CASE EVENT DATE: 20210206
